FAERS Safety Report 18537841 (Version 3)
Quarter: 2020Q4

REPORT INFORMATION
  Report Type: Spontaneous
  Country: US (occurrence: US)
  Receive Date: 20201123
  Receipt Date: 20201209
  Transmission Date: 20210114
  Serious: No
  Sender: FDA-Public Use
  Company Number: US-SUNOVION-2020SUN003500

PATIENT
  Age: 74 Year
  Sex: Female

DRUGS (1)
  1. KYNMOBI [Suspect]
     Active Substance: APOMORPHINE HYDROCHLORIDE
     Dosage: UNK
     Route: 060

REACTIONS (9)
  - Daydreaming [Unknown]
  - Drug ineffective [Unknown]
  - Agitation [Unknown]
  - Rib fracture [Unknown]
  - Coordination abnormal [Unknown]
  - Fall [Unknown]
  - Spinal column injury [Unknown]
  - Poor quality sleep [Unknown]
  - Feeling abnormal [Unknown]

NARRATIVE: CASE EVENT DATE: 20201116
